FAERS Safety Report 5211608-8 (Version None)
Quarter: 2007Q1

REPORT INFORMATION
  Report Type: 
  Country: None (occurrence: None)
  Receive Date: 20070117
  Receipt Date: 20070117
  Transmission Date: 20070707
  Serious: Yes (Hospitalization)
  Sender: FDA-Public Use
  Company Number: None

PATIENT
  Age: 47 Year
  Sex: Male
  Weight: 79.3795 kg

DRUGS (9)
  1. BENZTROPINE MESYLATE [Suspect]
     Indication: ANXIETY
     Dosage: 1 MG TID PO
     Route: 048
  2. BENZTROPINE MESYLATE [Concomitant]
  3. CLONAZEPAM [Concomitant]
  4. CYANOCLBALAMIN [Concomitant]
  5. IBUPROFEN [Concomitant]
  6. METOPROLOL SUCCINATE [Concomitant]
  7. OMEPRAZOLE [Concomitant]
  8. PAROXETINE HCL [Concomitant]
  9. TRAZODONE HCL [Concomitant]

REACTIONS (10)
  - CENTRAL NERVOUS SYSTEM LESION [None]
  - CONFUSIONAL STATE [None]
  - DELIRIUM [None]
  - ILL-DEFINED DISORDER [None]
  - INCORRECT DOSE ADMINISTERED [None]
  - INFECTION [None]
  - MENTAL STATUS CHANGES [None]
  - METABOLIC DISORDER [None]
  - MUCOSAL DRYNESS [None]
  - MYDRIASIS [None]
